FAERS Safety Report 9377057 (Version 3)
Quarter: 2013Q3

REPORT INFORMATION
  Report Type: Spontaneous
  Country: CA (occurrence: CA)
  Receive Date: 20130701
  Receipt Date: 20130801
  Transmission Date: 20140515
  Serious: Yes (Hospitalization)
  Sender: FDA-Public Use
  Company Number: CA-GENZYME-FABR-1003375

PATIENT
  Age: 32 Year
  Sex: Male
  Weight: 64 kg

DRUGS (19)
  1. FABRAZYME [Suspect]
     Indication: FABRY^S DISEASE
     Dosage: 1.01 MG/KG, Q2W
     Route: 042
     Dates: start: 20130102
  2. ASA [Concomitant]
     Indication: ANTIPLATELET THERAPY
     Dosage: 81 MG, QD
     Route: 065
     Dates: start: 2012
  3. LOSARTAN [Concomitant]
     Indication: PRODUCT USED FOR UNKNOWN INDICATION
     Dosage: 100 MG, QD
     Route: 065
     Dates: start: 201305
  4. AMLODIPINE [Concomitant]
     Indication: PRODUCT USED FOR UNKNOWN INDICATION
     Dosage: 10 MG, QD
     Route: 065
     Dates: start: 2012
  5. PREDNISONE [Concomitant]
     Indication: STEROID THERAPY
     Dosage: TAPERING DOSE
     Route: 065
     Dates: start: 201306
  6. CALCIUM ACETATE [Concomitant]
     Indication: SUPPLEMENTATION THERAPY
     Dosage: 667 MG, TID
     Route: 065
     Dates: start: 201303
  7. CLONAZEPAM [Concomitant]
     Indication: SEDATIVE THERAPY
     Dosage: 0.25 - 0.5 MG, PRN
     Route: 065
     Dates: start: 201306
  8. FOLIC ACID [Concomitant]
     Indication: SUPPLEMENTATION THERAPY
     Dosage: 5 MG, QD
     Route: 065
     Dates: start: 201306
  9. COLACE [Concomitant]
     Indication: PRODUCT USED FOR UNKNOWN INDICATION
     Dosage: 200 MG, QD
     Route: 065
     Dates: start: 201306
  10. DILANTIN [Concomitant]
     Indication: CONVULSION
     Dosage: 300 MG, QHS
     Route: 065
     Dates: start: 201306
  11. RENA-VITE [Concomitant]
     Indication: SUPPLEMENTATION THERAPY
     Dosage: 1 DF, QD
     Route: 065
     Dates: start: 201303
  12. GABAPENTIN [Concomitant]
     Indication: PARAESTHESIA
     Dosage: 100 MG, QHS
     Route: 065
     Dates: start: 2013
  13. ALFACALCIDOL [Concomitant]
     Indication: SUPPLEMENTATION THERAPY
     Dosage: 0.25 MCG, 3X/W
     Route: 065
     Dates: start: 201303
  14. PANTOPRAZOLE [Concomitant]
     Indication: PRODUCT USED FOR UNKNOWN INDICATION
     Dosage: 40 MG, QD
     Route: 065
     Dates: start: 201306
  15. FERROUS GLUCONATE [Concomitant]
     Indication: SUPPLEMENTATION THERAPY
     Dosage: 125 MG, Q2W
     Route: 042
     Dates: start: 201306
  16. DARBEPOETIN ALFA [Concomitant]
     Indication: ANAEMIA
     Dosage: 40 MCG, 1X/W
     Route: 042
     Dates: start: 201306
  17. PLAVIX [Concomitant]
     Indication: PRODUCT USED FOR UNKNOWN INDICATION
     Dosage: 75 MG, QD
     Route: 065
     Dates: start: 201306
  18. BISOPROLOL [Concomitant]
     Indication: PRODUCT USED FOR UNKNOWN INDICATION
     Dosage: 10 MG, QD
     Route: 065
     Dates: start: 201306
  19. ROSUVASTATIN [Concomitant]
     Indication: PRODUCT USED FOR UNKNOWN INDICATION
     Dosage: 20 MG, QD
     Route: 065
     Dates: start: 201306

REACTIONS (1)
  - Acute coronary syndrome [Recovered/Resolved]
